FAERS Safety Report 8143376-4 (Version None)
Quarter: 2012Q1

REPORT INFORMATION
  Report Type: 
  Country: None (occurrence: None)
  Receive Date: 20120217
  Receipt Date: 20120207
  Transmission Date: 20120608
  Serious: Yes (Other)
  Sender: FDA-Public Use
  Company Number: CA-JNJFOC-20120204253

PATIENT
  Sex: Female
  Weight: 55 kg

DRUGS (13)
  1. REMICADE [Suspect]
     Route: 042
  2. BENADRYL [Concomitant]
     Indication: PREMEDICATION
     Route: 065
  3. MYCOPHENOLATE MOFETIL (CELLCEPT) [Concomitant]
     Route: 048
  4. REMICADE [Suspect]
     Route: 042
     Dates: start: 20111104
  5. AMOXIL [Concomitant]
     Route: 048
  6. NEXIUM [Concomitant]
     Route: 048
  7. REMICADE [Suspect]
     Indication: UVEITIS
     Route: 042
  8. REMICADE [Suspect]
     Route: 042
     Dates: start: 20111227, end: 20111227
  9. REMICADE [Suspect]
     Route: 042
     Dates: start: 20111104
  10. REMICADE [Suspect]
     Indication: ANKYLOSING SPONDYLITIS
     Route: 042
     Dates: start: 20111227, end: 20111227
  11. DETROL [Concomitant]
     Route: 048
  12. PIROXICAM [Concomitant]
     Route: 048
  13. EMPRACET [Concomitant]
     Dosage: PER DAY AS NECESSSARY
     Route: 048

REACTIONS (2)
  - THROAT IRRITATION [None]
  - THROAT TIGHTNESS [None]
